FAERS Safety Report 23133564 (Version 1)
Quarter: 2023Q4

REPORT INFORMATION
  Report Type: Spontaneous
  Country: US (occurrence: US)
  Receive Date: 20231101
  Receipt Date: 20231101
  Transmission Date: 20240109
  Serious: Yes (Other)
  Sender: FDA-Public Use
  Company Number: US-BAYER-2023A154386

PATIENT

DRUGS (1)
  1. AFRIN ORIGINAL NASAL [Suspect]
     Active Substance: OXYMETAZOLINE HYDROCHLORIDE
     Dosage: PUMP MORE THEN 4 TIMES IN 12 HOURS

REACTIONS (2)
  - Hallucination [Unknown]
  - Incorrect dose administered [Unknown]
